FAERS Safety Report 5228416-4 (Version None)
Quarter: 2007Q1

REPORT INFORMATION
  Report Type: 
  Country: None (occurrence: None)
  Receive Date: 20070131
  Receipt Date: 20070131
  Transmission Date: 20070707
  Serious: No
  Sender: FDA-Public Use
  Company Number: None

PATIENT
  Age: 14 Year
  Sex: Female
  Weight: 52.1637 kg

DRUGS (5)
  1. VANCOMYCIN HYDROCHLORIDE [Suspect]
     Indication: CELLULITIS
     Dosage: 1 GM Q 12 HOURS IV
     Route: 042
     Dates: start: 20060806, end: 20060808
  2. CLINDAMYCIN [Concomitant]
  3. DILAUDID [Concomitant]
  4. PHENERGAN [Concomitant]
  5. VICODIN [Concomitant]

REACTIONS (5)
  - INFUSION RELATED REACTION [None]
  - INFUSION SITE ERYTHEMA [None]
  - INFUSION SITE OEDEMA [None]
  - INFUSION SITE PAIN [None]
  - RED MAN SYNDROME [None]
